FAERS Safety Report 5392131-7 (Version None)
Quarter: 2007Q3

REPORT INFORMATION
  Report Type: 
  Country: None (occurrence: None)
  Receive Date: 20070718
  Receipt Date: 20070718
  Transmission Date: 20080115
  Serious: Yes (Hospitalization, Other)
  Sender: FDA-Public Use
  Company Number: None

PATIENT
  Sex: Female
  Weight: 99.7913 kg

DRUGS (4)
  1. LUCENTIS [Suspect]
     Indication: MACULAR DEGENERATION
     Dosage: 0.5MG ONCE INTRAOCULAR
     Route: 031
     Dates: start: 20070531
  2. AVASTIN [Suspect]
     Dosage: 1.25 MG ONCE INTRAOCULAR
     Route: 031
     Dates: start: 20060927
  3. MULTIVITAMIN [Concomitant]
  4. ASPIRIN [Concomitant]

REACTIONS (1)
  - COAGULOPATHY [None]
